FAERS Safety Report 6773925-X (Version None)
Quarter: 2010Q2

REPORT INFORMATION
  Report Type: 
  Country: None (occurrence: None)
  Receive Date: 20100616
  Receipt Date: 20100616
  Transmission Date: 20101027
  Serious: No
  Sender: FDA-Public Use
  Company Number: None

PATIENT
  Age: 10 Year
  Sex: Male

DRUGS (1)
  1. LAMICTAL [Suspect]
     Indication: EPILEPSY
     Dosage: 2 TABS QAM 3 TABS QPM ONGOING SINCE PT WAS 4 YRS OLD

REACTIONS (2)
  - PRODUCT SUBSTITUTION ISSUE [None]
  - RASH [None]
